FAERS Safety Report 12676917 (Version 1)
Quarter: 2016Q3

REPORT INFORMATION
  Report Type: Spontaneous
  Country: US (occurrence: US)
  Receive Date: 20160823
  Receipt Date: 20160823
  Transmission Date: 20161109
  Serious: No
  Sender: FDA-Public Use
  Company Number: US-TEVA-645737USA

PATIENT
  Age: 64 Year
  Sex: Male
  Weight: 86.26 kg

DRUGS (1)
  1. CLONIDINE. [Suspect]
     Active Substance: CLONIDINE
     Indication: BLOOD PRESSURE MEASUREMENT
     Dosage: .1 MILLIGRAM DAILY;
     Route: 062
     Dates: start: 201602, end: 201603

REACTIONS (3)
  - Application site irritation [Unknown]
  - Application site urticaria [Unknown]
  - Application site erythema [Unknown]

NARRATIVE: CASE EVENT DATE: 201603
